FAERS Safety Report 11391420 (Version 2)
Quarter: 2015Q4

REPORT INFORMATION
  Report Type: Report from Study
  Country: GB (occurrence: GB)
  Receive Date: 20150818
  Receipt Date: 20151028
  Transmission Date: 20160304
  Serious: Yes (Hospitalization)
  Sender: FDA-Public Use
  Company Number: GB-ROCHE-ITM201503IM011425

PATIENT
  Sex: Male

DRUGS (2)
  1. ESBRIET [Suspect]
     Active Substance: PIRFENIDONE
     Indication: IDIOPATHIC PULMONARY FIBROSIS
     Dosage: 2403MG TOTAL DAILY DOSE
     Route: 048
     Dates: start: 20150227, end: 201508
  2. SILDENAFIL. [Suspect]
     Active Substance: SILDENAFIL
     Indication: PRODUCT USED FOR UNKNOWN INDICATION
     Route: 065

REACTIONS (15)
  - Dysgeusia [Unknown]
  - General physical health deterioration [Unknown]
  - Fluid retention [Unknown]
  - Dyspnoea [Unknown]
  - Decreased appetite [Unknown]
  - Nausea [Recovered/Resolved]
  - Hypoacusis [Unknown]
  - Peripheral swelling [Unknown]
  - Abdominal distension [Unknown]
  - Sleep disorder [Unknown]
  - Drug ineffective [Unknown]
  - Somnolence [Unknown]
  - Oxygen saturation abnormal [Unknown]
  - Parosmia [Unknown]
  - Tremor [Unknown]
